FAERS Safety Report 16727743 (Version 1)
Quarter: 2019Q3

REPORT INFORMATION
  Report Type: Spontaneous
  Country: US (occurrence: US)
  Receive Date: 20190822
  Receipt Date: 20190822
  Transmission Date: 20191005
  Serious: Yes (Other)
  Sender: FDA-Public Use
  Company Number: US-PAREXEL-2018US009299

PATIENT

DRUGS (10)
  1. AVAPRO [Concomitant]
     Active Substance: IRBESARTAN
  2. LOPRESSOR [Concomitant]
     Active Substance: METOPROLOL TARTRATE
  3. ATORVASTATIN [Concomitant]
     Active Substance: ATORVASTATIN
  4. CASODEX [Concomitant]
     Active Substance: BICALUTAMIDE
  5. HYDROCHLOROTHIAZIDE. [Concomitant]
     Active Substance: HYDROCHLOROTHIAZIDE
  6. ELIGARD [Suspect]
     Active Substance: LEUPROLIDE ACETATE
     Indication: PROSTATE CANCER
     Dosage: 45 MG, 6 MONTH DOSE
     Route: 058
     Dates: start: 20180621
  7. NITROSTAT [Concomitant]
     Active Substance: NITROGLYCERIN
  8. SILDENAFIL. [Concomitant]
     Active Substance: SILDENAFIL
  9. FLOMAX [Concomitant]
     Active Substance: TAMSULOSIN HYDROCHLORIDE
  10. EFUDEX [Concomitant]
     Active Substance: FLUOROURACIL

REACTIONS (3)
  - Drug ineffective [Unknown]
  - Off label use [Unknown]
  - Blood testosterone abnormal [Unknown]

NARRATIVE: CASE EVENT DATE: 2018
